FAERS Safety Report 11380042 (Version 1)
Quarter: 2015Q3

REPORT INFORMATION
  Report Type: Spontaneous
  Country: JP (occurrence: JP)
  Receive Date: 20150814
  Receipt Date: 20150814
  Transmission Date: 20151125
  Serious: Yes (Hospitalization)
  Sender: FDA-Public Use
  Company Number: PHHY2015JP097403

PATIENT
  Age: 73 Year
  Sex: Male

DRUGS (1)
  1. RIVASTACH [Suspect]
     Active Substance: RIVASTIGMINE
     Indication: DEMENTIA ALZHEIMER^S TYPE
     Dosage: 1.9 MG, QD (4.5 MG RIVASTIGMINE BASE) (PATCH SIZE 2.5 CM2)
     Route: 062

REACTIONS (2)
  - Bradycardia [Unknown]
  - Infection [Not Recovered/Not Resolved]
